FAERS Safety Report 19899736 (Version 1)
Quarter: 2021Q3

REPORT INFORMATION
  Report Type: Spontaneous
  Country: US (occurrence: US)
  Receive Date: 20210930
  Receipt Date: 20210930
  Transmission Date: 20211014
  Serious: No
  Sender: FDA-Public Use
  Company Number: None

PATIENT
  Age: 78 Year
  Sex: Female
  Weight: 77.85 kg

DRUGS (9)
  1. LORAZEPAM. [Concomitant]
     Active Substance: LORAZEPAM
  2. LETROZOLE. [Concomitant]
     Active Substance: LETROZOLE
  3. TYLENOL PM [Concomitant]
     Active Substance: ACETAMINOPHEN\DIPHENHYDRAMINE
  4. VERZENIO [Suspect]
     Active Substance: ABEMACICLIB
     Indication: NEOPLASM
     Route: 048
     Dates: start: 20210721, end: 20210929
  5. DIPHENHYDRAMINE. [Concomitant]
     Active Substance: DIPHENHYDRAMINE
  6. METOPROLOL. [Concomitant]
     Active Substance: METOPROLOL
  7. LISINOPRIL. [Concomitant]
     Active Substance: LISINOPRIL
  8. OMEPRAZOLE. [Concomitant]
     Active Substance: OMEPRAZOLE
  9. PRAVASATAIN [Concomitant]

REACTIONS (8)
  - Decreased appetite [None]
  - Nausea [None]
  - Diarrhoea [None]
  - Peripheral swelling [None]
  - Abdominal pain upper [None]
  - Headache [None]
  - Fatigue [None]
  - Stomatitis [None]

NARRATIVE: CASE EVENT DATE: 20210929
